FAERS Safety Report 14773753 (Version 1)
Quarter: 2018Q2

REPORT INFORMATION
  Report Type: Spontaneous
  Country: US (occurrence: US)
  Receive Date: 20180411
  Receipt Date: 20180411
  Transmission Date: 20180711
  Serious: Yes (Disabling)
  Sender: FDA-Public Use
  Company Number: None

PATIENT
  Age: 64 Year
  Sex: Female
  Weight: 112.5 kg

DRUGS (2)
  1. ELIQUIS [Suspect]
     Active Substance: APIXABAN
     Indication: FACTOR V LEIDEN CARRIER
     Dosage: ?          QUANTITY:1 TABLET(S);?
     Route: 048
  2. ELIQUIS [Suspect]
     Active Substance: APIXABAN
     Indication: DEEP VEIN THROMBOSIS
     Dosage: ?          QUANTITY:1 TABLET(S);?
     Route: 048

REACTIONS (4)
  - Muscular weakness [None]
  - Fatigue [None]
  - Loss of personal independence in daily activities [None]
  - Dyspnoea [None]

NARRATIVE: CASE EVENT DATE: 20170102
